FAERS Safety Report 13145822 (Version 3)
Quarter: 2017Q2

REPORT INFORMATION
  Report Type: Spontaneous
  Country: US (occurrence: US)
  Receive Date: 20170124
  Receipt Date: 20170425
  Transmission Date: 20170830
  Serious: Yes (Other)
  Sender: FDA-Public Use
  Company Number: US-BAUSCH-BL-2017-001104

PATIENT
  Sex: Female

DRUGS (1)
  1. SOOTHE LONG LASTING (PRESERVATIVE FREE) [Suspect]
     Active Substance: GLYCERIN\PROPYLENE GLYCOL
     Indication: DRY EYE
     Dosage: POSSIBLY TWO DROPS IN EACH EYE THREE TIMES A DAY
     Route: 047
     Dates: start: 201610, end: 20170111

REACTIONS (3)
  - Visual impairment [Unknown]
  - Cataract [Unknown]
  - Vision blurred [Not Recovered/Not Resolved]

NARRATIVE: CASE EVENT DATE: 201701
